FAERS Safety Report 5469931-8 (Version None)
Quarter: 2007Q3

REPORT INFORMATION
  Report Type: 
  Country: None (occurrence: None)
  Receive Date: 20070927
  Receipt Date: 20070305
  Transmission Date: 20080115
  Serious: No
  Sender: FDA-Public Use
  Company Number: US-AMGEN-KDL213698

PATIENT
  Sex: Male
  Weight: 87.6 kg

DRUGS (5)
  1. NEULASTA [Suspect]
     Indication: CHEMOTHERAPY
     Dates: start: 20060714, end: 20070126
  2. NEUPOGEN [Suspect]
     Dates: start: 20070101
  3. LEUCOVORIN [Concomitant]
  4. OXALIPLATIN [Concomitant]
  5. FLUOROURACIL [Concomitant]

REACTIONS (2)
  - PERIPHERAL COLDNESS [None]
  - SENSATION OF HEAVINESS [None]
